FAERS Safety Report 9116472 (Version 1)
Quarter: 2013Q1

REPORT INFORMATION
  Report Type: Spontaneous
  Country: FR (occurrence: FR)
  Receive Date: 20130225
  Receipt Date: 20130225
  Transmission Date: 20140127
  Serious: Yes (Hospitalization)
  Sender: FDA-Public Use
  Company Number: FR-US-EMD SERONO, INC.-7194490

PATIENT
  Age: 34 Year
  Sex: Female

DRUGS (6)
  1. OVITRELLE [Suspect]
     Indication: IN VITRO FERTILISATION
     Route: 058
     Dates: start: 20100306, end: 20100306
  2. PUREGON [Suspect]
     Indication: IN VITRO FERTILISATION
     Route: 058
     Dates: start: 20100223, end: 20100301
  3. PUREGON [Suspect]
     Route: 058
     Dates: start: 20100303, end: 20100303
  4. PUREGON [Suspect]
     Route: 058
     Dates: start: 20100304, end: 20100304
  5. ETHINYLESTRADIOL [Suspect]
     Indication: IN VITRO FERTILISATION
     Route: 048
     Dates: start: 201002, end: 201002
  6. FOSTIMON [Suspect]
     Indication: OVULATION INDUCTION
     Dates: start: 2009, end: 2009

REACTIONS (1)
  - Deep vein thrombosis [Not Recovered/Not Resolved]
